FAERS Safety Report 5651566-5 (Version None)
Quarter: 2008Q1

REPORT INFORMATION
  Report Type: 
  Country: None (occurrence: None)
  Receive Date: 20080131
  Receipt Date: 20071004
  Transmission Date: 20080703
  Serious: No
  Sender: FDA-Public Use
  Company Number: US200710001578

PATIENT
  Sex: Female

DRUGS (1)
  1. BYETTA [Suspect]
     Dosage: 70 U, SUBCUTANEOUS
     Route: 058

REACTIONS (2)
  - INCORRECT DOSE ADMINISTERED [None]
  - OVERDOSE [None]
